FAERS Safety Report 5010282-3 (Version None)
Quarter: 2006Q2

REPORT INFORMATION
  Report Type: 
  Country: None (occurrence: None)
  Receive Date: 20060404
  Receipt Date: 20051220
  Transmission Date: 20061013
  Serious: No
  Sender: FDA-Public Use
  Company Number: US200512000640

PATIENT
  Age: 29 Year
  Sex: Male
  Weight: 72.6 kg

DRUGS (2)
  1. CYMBALTA [Suspect]
     Indication: ANXIETY
  2. EFFEXOR [Concomitant]

REACTIONS (2)
  - DEPRESSION [None]
  - DRUG WITHDRAWAL SYNDROME [None]
